FAERS Safety Report 14442048 (Version 2)
Quarter: 2018Q1

REPORT INFORMATION
  Report Type: Spontaneous
  Country: US (occurrence: US)
  Receive Date: 20180125
  Receipt Date: 20180306
  Transmission Date: 20180509
  Serious: No
  Sender: FDA-Public Use
  Company Number: US-009507513-1801USA008805

PATIENT
  Sex: Female
  Weight: 63.49 kg

DRUGS (1)
  1. NEXPLANON [Suspect]
     Active Substance: ETONOGESTREL
     Indication: CONTRACEPTION
     Dosage: 3 YEARS IMPLANT
     Route: 059
     Dates: start: 20161101

REACTIONS (5)
  - Feeling abnormal [Unknown]
  - Menstruation irregular [Unknown]
  - Hormone level abnormal [Unknown]
  - Menorrhagia [Unknown]
  - Mood altered [Unknown]
